FAERS Safety Report 9541548 (Version 1)
Quarter: 2013Q3

REPORT INFORMATION
  Report Type: Spontaneous
  Country: US (occurrence: None)
  Receive Date: 20130918
  Receipt Date: 20130918
  Transmission Date: 20140515
  Serious: Yes (Other)
  Sender: FDA-Public Use
  Company Number: None

PATIENT
  Age: 68 Year
  Sex: Male
  Weight: 73 kg

DRUGS (16)
  1. CHOLETEC [Suspect]
     Indication: HEPATOBILIARY SCAN
     Dosage: 6.4 MILLICURIES INTRAVENOUS
     Route: 042
     Dates: start: 20130418, end: 20130418
  2. CHOLETEC [Suspect]
     Indication: HEPATOBILIARY SCAN
     Dosage: 6.4 MILLICURIES INTRAVENOUS
     Route: 042
     Dates: start: 20130418, end: 20130418
  3. ASPIRIN , [Concomitant]
  4. ALLOPURINOL , [Concomitant]
  5. AMLODIPINE , [Concomitant]
  6. BETAMETHASONE , [Concomitant]
  7. FINASTERIDE, [Concomitant]
  8. INDOMETHACIN, [Concomitant]
  9. METHOCARBAMOL, [Concomitant]
  10. OMEPRAZOLE, SODIUM BICARBONATE, MAGNESIUM HYDROXIDE [Concomitant]
  11. TRAZODONE. [Concomitant]
  12. COMBIVENT INHALER. [Concomitant]
  13. FENTANYL, [Concomitant]
  14. INSULIN, [Concomitant]
  15. MICAFUNGIN, [Concomitant]
  16. PANTOPRAZOLE [Concomitant]

REACTIONS (3)
  - Respiratory failure [None]
  - Condition aggravated [None]
  - Rash generalised [None]
